FAERS Safety Report 21568539 (Version 2)
Quarter: 2023Q2

REPORT INFORMATION
  Report Type: Report from Study
  Country: US (occurrence: US)
  Receive Date: 20221108
  Receipt Date: 20230630
  Transmission Date: 20230722
  Serious: Yes (Hospitalization, Other)
  Sender: FDA-Public Use
  Company Number: US-GW PHARMA-2022-US-034412

PATIENT
  Sex: Male

DRUGS (1)
  1. EPIDIOLEX [Suspect]
     Active Substance: CANNABIDIOL
     Indication: Cerebral palsy
     Dosage: 2.8 MILLILITER, BID
     Route: 048
     Dates: start: 202105

REACTIONS (3)
  - Pneumonia [Unknown]
  - Rhinovirus infection [Unknown]
  - Off label use [Unknown]
